FAERS Safety Report 10264685 (Version 1)
Quarter: 2014Q2

REPORT INFORMATION
  Report Type: Spontaneous
  Country: US (occurrence: US)
  Receive Date: 20140627
  Receipt Date: 20140627
  Transmission Date: 20141212
  Serious: No
  Sender: FDA-Public Use
  Company Number: US-GLAXOSMITHKLINE-A1071017A

PATIENT
  Age: 62 Year
  Sex: Female

DRUGS (2)
  1. TAFINLAR [Suspect]
     Indication: MALIGNANT MELANOMA
     Dosage: 150MG TWICE PER DAY
     Route: 065
  2. MEKINIST [Suspect]
     Indication: MALIGNANT MELANOMA
     Dosage: 2MG PER DAY
     Route: 048

REACTIONS (3)
  - Pyrexia [Unknown]
  - Constipation [Unknown]
  - Vomiting [Unknown]
